FAERS Safety Report 8963731 (Version 1)
Quarter: 2012Q4

REPORT INFORMATION
  Report Type: 
  Country: US (occurrence: US)
  Receive Date: 20121214
  Receipt Date: 20121214
  Transmission Date: 20130627
  Serious: No
  Sender: FDA-Public Use
  Company Number: US-BAYER-2012-125390

PATIENT
  Sex: Male
  Weight: 76 kg

DRUGS (2)
  1. BETASERON [Suspect]
     Dosage: 0.3 mg, QOD
     Route: 058
  2. TYLENOL [PARACETAMOL] [Concomitant]

REACTIONS (2)
  - Pyrexia [Unknown]
  - Injection site pain [Recovering/Resolving]
